FAERS Safety Report 7765986-6 (Version None)
Quarter: 2011Q3

REPORT INFORMATION
  Report Type: 
  Country: None (occurrence: None)
  Receive Date: 20110921
  Receipt Date: 20110908
  Transmission Date: 20111222
  Serious: Yes (Other)
  Sender: FDA-Public Use
  Company Number: GB-MYLANLABS-2011S1018978

PATIENT
  Age: 19 Year
  Sex: Female

DRUGS (2)
  1. VENLAFAXINE HYDROCHLORIDE [Suspect]
     Indication: DEPRESSION
     Route: 048
     Dates: start: 20110729, end: 20110802
  2. CITALOPRAM HYDROBROMIDE [Concomitant]
     Indication: OBSESSIVE-COMPULSIVE DISORDER
     Route: 048
     Dates: start: 20110521, end: 20110501

REACTIONS (6)
  - ERYTHEMA [None]
  - PHOTOSENSITIVITY REACTION [None]
  - RASH GENERALISED [None]
  - PYREXIA [None]
  - HEADACHE [None]
  - SEDATION [None]
